FAERS Safety Report 5492979-4 (Version None)
Quarter: 2007Q4

REPORT INFORMATION
  Report Type: 
  Country: None (occurrence: None)
  Receive Date: 20071023
  Receipt Date: 20071012
  Transmission Date: 20080405
  Serious: Yes (Other)
  Sender: FDA-Public Use
  Company Number: US-JNJFOC-20071003532

PATIENT
  Sex: Female
  Weight: 147.42 kg

DRUGS (16)
  1. REMICADE [Suspect]
     Indication: RHEUMATOID ARTHRITIS
     Dosage: AT WEEK 0 AND WEEK 2
     Route: 042
  2. ALLEGRA [Concomitant]
     Indication: PREMEDICATION
     Route: 048
  3. TYLENOL (CAPLET) [Concomitant]
     Indication: PREMEDICATION
     Route: 048
  4. PREDNISONE [Concomitant]
  5. VERAPAMIL ER [Concomitant]
  6. AVANDAMET [Concomitant]
     Dosage: DOSAGE: 2MG/1000MG B11
  7. LEVOTHYROXINE SODIUM [Concomitant]
     Dosage: DOSAGE 300MCG
  8. PLAQUENIL [Concomitant]
     Dosage: DOSAGE 200MG DAILY (3 PILLS)
  9. REQUIP [Concomitant]
  10. ZYRTEC [Concomitant]
  11. PROVIGIL [Concomitant]
  12. ZOCOR [Concomitant]
  13. TRICOR [Concomitant]
  14. MTX [Concomitant]
     Dosage: DOSAGE 4 TABS WEEKLY
  15. ALBUTERAL [Concomitant]
     Dosage: PRN
     Route: 055
  16. LISINOPRIL [Concomitant]

REACTIONS (2)
  - ASTHMA [None]
  - INFUSION RELATED REACTION [None]
